FAERS Safety Report 24636086 (Version 1)
Quarter: 2024Q4

REPORT INFORMATION
  Report Type: Spontaneous
  Country: US (occurrence: None)
  Receive Date: 20241118
  Receipt Date: 20241118
  Transmission Date: 20250115
  Serious: Yes (Hospitalization)
  Sender: Public
  Company Number: None

PATIENT
  Age: 84 Year
  Sex: Male
  Weight: 64.6 kg

DRUGS (12)
  1. SIROLIMUS [Suspect]
     Active Substance: SIROLIMUS
     Indication: Heart transplant
     Dates: start: 20240212
  2. MYCOPHENOLIC ACID [Suspect]
     Active Substance: MYCOPHENOLIC ACID
     Indication: Heart transplant
     Dates: start: 20240509
  3. Calcium + Vitamin D [Concomitant]
  4. MAGNESIUM [Concomitant]
  5. Multivitamin [Concomitant]
  6. ATORVASTATIN [Concomitant]
  7. CLOPIDOGREL [Concomitant]
  8. XARELTO [Concomitant]
  9. VALSARTAN [Concomitant]
     Active Substance: VALSARTAN
  10. TORSEMIDE [Concomitant]
  11. LEVOTHYROXINE [Concomitant]
  12. GABAPENTIN [Concomitant]

REACTIONS (1)
  - Hospitalisation [None]
